FAERS Safety Report 24558020 (Version 2)
Quarter: 2025Q3

REPORT INFORMATION
  Report Type: Report from Study
  Country: US (occurrence: US)
  Receive Date: 20241028
  Receipt Date: 20250802
  Transmission Date: 20251020
  Serious: Yes (Other)
  Sender: ALEXION PHARMACEUTICALS
  Company Number: US-AstraZeneca-CH-00720301A

PATIENT
  Sex: Female

DRUGS (1)
  1. OLAPARIB [Suspect]
     Active Substance: OLAPARIB
     Indication: Ovarian cancer
     Dosage: 300 MILLIGRAM, BID

REACTIONS (10)
  - Seizure [Unknown]
  - Generalised tonic-clonic seizure [Unknown]
  - Petit mal epilepsy [Unknown]
  - Vitamin B12 decreased [Unknown]
  - Vertigo [Unknown]
  - Dizziness [Unknown]
  - Neoplasm [Unknown]
  - Dizziness [Unknown]
  - Contusion [Unknown]
  - Product dose omission issue [Unknown]
